FAERS Safety Report 5656690-9 (Version None)
Quarter: 2008Q1

REPORT INFORMATION
  Report Type: 
  Country: None (occurrence: None)
  Receive Date: 20080306
  Receipt Date: 20080306
  Transmission Date: 20080703
  Serious: Yes (Death, Life-Threatening, Hospitalization)
  Sender: FDA-Public Use
  Company Number: None

PATIENT
  Age: 13 Month
  Sex: Female
  Weight: 3.6288 kg

DRUGS (1)
  1. FENTANYL [Suspect]
     Dates: start: 20080215, end: 20080215

REACTIONS (1)
  - OVERDOSE [None]
